FAERS Safety Report 13638612 (Version 3)
Quarter: 2017Q4

REPORT INFORMATION
  Report Type: Spontaneous
  Country: US (occurrence: US)
  Receive Date: 20170609
  Receipt Date: 20171120
  Transmission Date: 20180320
  Serious: No
  Sender: FDA-Public Use
  Company Number: US-BAYER-2017-109934

PATIENT
  Age: 81 Year
  Sex: Female

DRUGS (1)
  1. BETASERON [Suspect]
     Active Substance: INTERFERON BETA-1B
     Indication: MULTIPLE SCLEROSIS
     Dosage: 0.3 MG, QOD
     Route: 058
     Dates: start: 20120530

REACTIONS (6)
  - Injection site pruritus [None]
  - Drug dose omission [None]
  - Memory impairment [None]
  - Injection site rash [Not Recovered/Not Resolved]
  - Injection site erythema [None]
  - Arthritis [None]

NARRATIVE: CASE EVENT DATE: 2017
